FAERS Safety Report 4383298-8 (Version None)
Quarter: 2004Q2

REPORT INFORMATION
  Report Type: 
  Country: None (occurrence: None)
  Receive Date: 20040623
  Receipt Date: 20040611
  Transmission Date: 20050107
  Serious: Yes (Hospitalization)
  Sender: FDA-Public Use
  Company Number: FR-BRISTOL-MYERS SQUIBB COMPANY-12613600

PATIENT
  Age: 34 Year
  Sex: Female

DRUGS (2)
  1. VIDEX [Suspect]
     Indication: HIV INFECTION
     Route: 048
     Dates: start: 20021104, end: 20030915
  2. COMBIVIR [Suspect]
     Indication: HIV INFECTION
     Route: 048
     Dates: start: 20021104, end: 20030915

REACTIONS (2)
  - CARDIAC FAILURE [None]
  - HAEMANGIOMA OF LIVER [None]
